FAERS Safety Report 24719978 (Version 1)
Quarter: 2024Q4

REPORT INFORMATION
  Report Type: Report from Study
  Country: VE (occurrence: VE)
  Receive Date: 20241211
  Receipt Date: 20241211
  Transmission Date: 20250114
  Serious: Yes (Other)
  Sender: ROCHE
  Company Number: VE-ROCHE-1587198

PATIENT
  Age: 78 Year
  Sex: Male

DRUGS (3)
  1. LUCENTIS [Suspect]
     Active Substance: RANIBIZUMAB
     Indication: Eye disorder
     Route: 065
     Dates: start: 2014
  2. LUCENTIS [Suspect]
     Active Substance: RANIBIZUMAB
     Route: 065
     Dates: start: 20141227
  3. VILDAGLIPTIN [Suspect]
     Active Substance: VILDAGLIPTIN
     Indication: Product used for unknown indication
     Route: 065

REACTIONS (6)
  - Infection [Unknown]
  - Vision blurred [Unknown]
  - Diabetes mellitus [Unknown]
  - Chikungunya virus infection [Unknown]
  - Eye inflammation [Unknown]
  - Visual impairment [Unknown]

NARRATIVE: CASE EVENT DATE: 20141101
